FAERS Safety Report 8177618-6 (Version None)
Quarter: 2012Q1

REPORT INFORMATION
  Report Type: 
  Country: None (occurrence: None)
  Receive Date: 20120301
  Receipt Date: 20120222
  Transmission Date: 20120608
  Serious: Yes (Disabling)
  Sender: FDA-Public Use
  Company Number: US-ROCHE-1038204

PATIENT
  Sex: Male
  Weight: 76.953 kg

DRUGS (15)
  1. ATIVAN [Concomitant]
     Route: 048
  2. CALCIUM/VITAMIN D [Concomitant]
     Dosage: 1250/400
  3. XELODA [Suspect]
     Indication: PRODUCT USED FOR UNKNOWN INDICATION
     Dosage: 1500 MG TWICE DAILY FOR 4 DAYS EVERY 21 DAYS.
     Route: 048
     Dates: start: 20110609, end: 20120131
  4. COMBIGAN [Concomitant]
     Route: 047
  5. PRILOSEC [Concomitant]
     Indication: GASTROOESOPHAGEAL REFLUX DISEASE
  6. TRAVATAN [Concomitant]
     Indication: GLAUCOMA
     Dosage: 0.004 %
     Route: 047
     Dates: start: 20110103
  7. ZINC SULFATE [Concomitant]
  8. SIMVASTATIN [Concomitant]
     Indication: HYPERLIPIDAEMIA
     Route: 048
  9. MIRTAZAPINE [Concomitant]
     Indication: INSOMNIA
     Route: 048
     Dates: start: 20110125
  10. POTASSIUM CHLORIDE [Concomitant]
     Route: 048
  11. COMPAZINE [Concomitant]
     Indication: NAUSEA
     Dosage: 4-6 PRN
     Route: 048
  12. ZOLOFT [Concomitant]
     Indication: DEPRESSION
     Route: 048
  13. AZOPT [Concomitant]
     Indication: GLAUCOMA
     Dosage: 1 % BID}
  14. ASPIRIN [Concomitant]
     Route: 048
  15. MAGNESIUM OXIDE [Concomitant]
     Route: 048
     Dates: start: 20111212

REACTIONS (1)
  - OPTIC ISCHAEMIC NEUROPATHY [None]
